FAERS Safety Report 7532333-4 (Version None)
Quarter: 2011Q2

REPORT INFORMATION
  Report Type: 
  Country: None (occurrence: None)
  Receive Date: 20110607
  Receipt Date: 20110607
  Transmission Date: 20111010
  Serious: Yes (Death, Hospitalization)
  Sender: FDA-Public Use
  Company Number: None

PATIENT
  Age: 56 Year
  Sex: Female
  Weight: 66 kg

DRUGS (2)
  1. PACLITAXEL [Suspect]
     Indication: BREAST CANCER
     Dosage: 80 MG/M2 EVERY WEEK INTRAVENOUS
     Route: 042
     Dates: start: 20110428, end: 20110528
  2. VORINOSTAT 300 MG BID PO DAYS 1-2 EVERY WEEK [Suspect]
     Indication: BREAST CANCER
     Dosage: 300 MG BID DAYS 1-3 EACH WEEK ORAL
     Route: 048
     Dates: start: 20110428, end: 20110528

REACTIONS (6)
  - VOMITING [None]
  - HYPOTENSION [None]
  - PULMONARY EMBOLISM [None]
  - ACIDOSIS [None]
  - SYNCOPE [None]
  - NAUSEA [None]
